FAERS Safety Report 23472866 (Version 1)
Quarter: 2024Q1

REPORT INFORMATION
  Report Type: Spontaneous
  Country: US (occurrence: US)
  Receive Date: 20240203
  Receipt Date: 20240203
  Transmission Date: 20240410
  Serious: No
  Sender: FDA-Public Use
  Company Number: US-HORIZON THERAPEUTICS-HZN-2021-005684

PATIENT

DRUGS (4)
  1. TEPEZZA [Suspect]
     Active Substance: TEPROTUMUMAB-TRBW
     Indication: Endocrine ophthalmopathy
     Dosage: 1160 MG, EVERY 3 WEEKS
     Route: 042
     Dates: start: 20210802
  2. TEPEZZA [Suspect]
     Active Substance: TEPROTUMUMAB-TRBW
     Dosage: 8TH INFUSION
     Route: 042
     Dates: start: 20220104
  3. EYEGEL [Concomitant]
  4. ARTIFICIAL TEARS [CARMELLOSE SODIUM] [Concomitant]

REACTIONS (10)
  - Decreased appetite [Unknown]
  - Ageusia [Unknown]
  - Muscle spasms [Not Recovered/Not Resolved]
  - Alopecia [Unknown]
  - Nausea [Unknown]
  - Fatigue [Unknown]
  - Therapy partial responder [Unknown]
  - Diplopia [Unknown]
  - Dry eye [Unknown]
  - Eye pain [Unknown]

NARRATIVE: CASE EVENT DATE: 20210809
